FAERS Safety Report 8469792-9 (Version None)
Quarter: 2012Q2

REPORT INFORMATION
  Report Type: 
  Country: None (occurrence: None)
  Receive Date: 20120626
  Receipt Date: 20120622
  Transmission Date: 20120825
  Serious: Yes (Death, Hospitalization)
  Sender: FDA-Public Use
  Company Number: SE-TEVA-327925USA

PATIENT
  Sex: Male
  Weight: 81.2 kg

DRUGS (12)
  1. CIPROFLOXACIN [Concomitant]
     Dates: start: 20120220, end: 20120229
  2. FESOTERODINE [Concomitant]
     Dates: start: 20091104
  3. FUROSEMIDE [Concomitant]
     Dates: start: 20000831
  4. ZOPICLONE [Concomitant]
     Dates: start: 20110101
  5. TREANDA [Suspect]
     Route: 042
     Dates: start: 20110909
  6. BISOPROLOL FUMARATE [Concomitant]
     Dates: start: 20000831
  7. CANDESARTAN [Concomitant]
     Dates: start: 20000831
  8. FINASTERIDE [Concomitant]
     Dates: start: 20040101
  9. WARFARIN SODIUM [Concomitant]
     Dates: start: 20000626
  10. CITALOPRAM [Concomitant]
     Dates: start: 20041228
  11. RITUXIMAB [Suspect]
     Dosage: EVERY 4 WEEKS
     Route: 042
     Dates: start: 20110909
  12. FOLSYRA [Concomitant]
     Dates: start: 20120221

REACTIONS (2)
  - POLYNEUROPATHY [None]
  - NEUROLOGICAL SYMPTOM [None]
